FAERS Safety Report 9657270 (Version 1)
Quarter: 2013Q4

REPORT INFORMATION
  Report Type: Spontaneous
  Country: HR (occurrence: HR)
  Receive Date: 20131030
  Receipt Date: 20131030
  Transmission Date: 20140711
  Serious: Yes (Other)
  Sender: FDA-Public Use
  Company Number: HR-TEVA-438794ISR

PATIENT
  Age: 47 Year
  Sex: Female
  Weight: 98 kg

DRUGS (4)
  1. ATORVOX TABLETE 10 MG [Suspect]
     Indication: LIPID METABOLISM DISORDER
     Dosage: 10 MILLIGRAM DAILY; 1 TABLET TOTAL
     Route: 048
     Dates: start: 20130625, end: 20130625
  2. EUTHYROX [Concomitant]
  3. CONCOR [Concomitant]
  4. IBUPROFEN [Concomitant]

REACTIONS (1)
  - Rectal haemorrhage [Recovered/Resolved]
